FAERS Safety Report 20092185 (Version 1)
Quarter: 2021Q4

REPORT INFORMATION
  Report Type: Spontaneous
  Country: GB (occurrence: GB)
  Receive Date: 20211119
  Receipt Date: 20211119
  Transmission Date: 20220303
  Serious: Yes (Other)
  Sender: FDA-Public Use
  Company Number: GB-ANIPHARMA-2021-UK-000324

PATIENT
  Age: 80 Year
  Sex: Female
  Weight: 78 kg

DRUGS (10)
  1. ANASTROZOLE [Suspect]
     Active Substance: ANASTROZOLE
     Indication: Breast cancer
     Dosage: 1 EVERY DAY
     Route: 048
     Dates: start: 20171206
  2. SODIUM IODIDE I-131 [Concomitant]
     Active Substance: SODIUM IODIDE I-131
     Route: 065
     Dates: start: 1984, end: 1984
  3. ALENDRONIC ACID [Concomitant]
     Active Substance: ALENDRONIC ACID
     Dosage: 70
     Route: 048
     Dates: start: 2018
  4. ATORVASTATIN [Concomitant]
     Active Substance: ATORVASTATIN
     Dosage: 20
     Route: 048
     Dates: start: 2010
  5. PFIZER-BIONTECH COVID-19 VACCINE [Suspect]
     Active Substance: TOZINAMERAN
     Dosage: DOSE 2 / DOSE 3A / UNKNOWN
     Route: 065
     Dates: start: 20210129, end: 20210129
  6. INVITA D3 [Concomitant]
     Dosage: 800
     Route: 048
     Dates: start: 201801
  7. LOSARTAN POTASSIUM [Concomitant]
     Active Substance: LOSARTAN POTASSIUM
     Dosage: 25
     Route: 048
     Dates: start: 20210202
  8. METFORMIN [Concomitant]
     Active Substance: METFORMIN HYDROCHLORIDE
     Dosage: 1000 TWO TIMES A DAY
     Route: 048
  9. NIFEDIPINE [Concomitant]
     Active Substance: NIFEDIPINE
     Route: 065
     Dates: end: 20210202
  10. CARBIMAZOLE [Concomitant]
     Active Substance: CARBIMAZOLE
     Route: 065

REACTIONS (4)
  - Blister [Recovering/Resolving]
  - Dermatitis bullous [Recovering/Resolving]
  - Erythema [Unknown]
  - Scab [Unknown]

NARRATIVE: CASE EVENT DATE: 20210329
